FAERS Safety Report 5763303-4 (Version None)
Quarter: 2008Q2

REPORT INFORMATION
  Report Type: 
  Country: None (occurrence: None)
  Receive Date: 20080604
  Receipt Date: 20080604
  Transmission Date: 20081010
  Serious: Yes (Life-Threatening, Other)
  Sender: FDA-Public Use
  Company Number: None

PATIENT
  Age: 70 Year
  Sex: Male
  Weight: 89.8122 kg

DRUGS (1)
  1. PREVALITE [Suspect]
     Indication: BLOOD CHOLESTEROL INCREASED
     Dosage: ONE -1- SCOOP PROVIDED DAILY PO
     Route: 048
     Dates: start: 20080304, end: 20080602

REACTIONS (3)
  - ANGINA PECTORIS [None]
  - ARRHYTHMIA [None]
  - MIDDLE INSOMNIA [None]
